FAERS Safety Report 23534117 (Version 1)
Quarter: 2024Q1

REPORT INFORMATION
  Report Type: Report from Study
  Country: CA (occurrence: CA)
  Receive Date: 20240216
  Receipt Date: 20240216
  Transmission Date: 20240410
  Serious: Yes (Disabling)
  Sender: FDA-Public Use
  Company Number: CA-HLS-202400489

PATIENT
  Sex: Male

DRUGS (1)
  1. CLOZARIL [Suspect]
     Active Substance: CLOZAPINE
     Indication: Parkinson^s disease
     Route: 048
     Dates: end: 20240213

REACTIONS (2)
  - Off label use [Unknown]
  - Motor dysfunction [Unknown]
